FAERS Safety Report 10043613 (Version 1)
Quarter: 2014Q1

REPORT INFORMATION
  Report Type: Report from Study
  Country: CA (occurrence: CA)
  Receive Date: 20140328
  Receipt Date: 20140328
  Transmission Date: 20141002
  Serious: Yes (Other)
  Sender: FDA-Public Use
  Company Number: CA-JNJFOC-20140314221

PATIENT
  Sex: Female

DRUGS (9)
  1. REMICADE [Suspect]
     Indication: CROHN^S DISEASE
     Dosage: THE PATIENT HAD RECEIVED 47 INFLIXIMAB INFUSIONS
     Route: 042
  2. ACETYLSALICYLIC ACID [Concomitant]
     Route: 065
  3. TYLENOL 3 [Concomitant]
     Route: 065
  4. IMURAN [Concomitant]
     Route: 065
  5. ATENOLOL [Concomitant]
     Route: 065
  6. PARIET [Concomitant]
     Route: 065
  7. BUSCOPAN [Concomitant]
     Route: 065
  8. ZOPLICONE [Concomitant]
     Route: 065
  9. LORAZEPAM [Concomitant]
     Route: 065

REACTIONS (2)
  - Blood iron decreased [Unknown]
  - Cystitis [Unknown]
